FAERS Safety Report 13546023 (Version 1)
Quarter: 2017Q2

REPORT INFORMATION
  Report Type: Spontaneous
  Country: US (occurrence: US)
  Receive Date: 20170515
  Receipt Date: 20170515
  Transmission Date: 20170830
  Serious: No
  Sender: FDA-Public Use
  Company Number: US-WARNER CHILCOTT-2016-001850

PATIENT
  Sex: Female

DRUGS (1)
  1. ACTONEL [Suspect]
     Active Substance: RISEDRONATE SODIUM
     Indication: OSTEOPOROSIS
     Dosage: 1 TABLET WEEKLY
     Route: 048
     Dates: start: 20160502, end: 20160627

REACTIONS (3)
  - Tendonitis [Recovered/Resolved]
  - Tendonitis [Not Recovered/Not Resolved]
  - Tinnitus [Not Recovered/Not Resolved]
